FAERS Safety Report 20899451 (Version 2)
Quarter: 2023Q1

REPORT INFORMATION
  Report Type: Report from Study
  Country: US (occurrence: US)
  Receive Date: 20220601
  Receipt Date: 20230301
  Transmission Date: 20230417
  Serious: No
  Sender: FDA-Public Use
  Company Number: US-KYOWAKIRIN-2022BKK008165

PATIENT

DRUGS (2)
  1. CRYSVITA [Suspect]
     Active Substance: BUROSUMAB-TWZA
     Indication: Hereditary hypophosphataemic rickets
     Dosage: 60 MG,EVERY 28 DAYS
     Route: 058
     Dates: start: 20200422
  2. CRYSVITA [Suspect]
     Active Substance: BUROSUMAB-TWZA
     Dosage: 60 MG,EVERY 28 DAYS
     Route: 058

REACTIONS (12)
  - Gingival disorder [Unknown]
  - Restless legs syndrome [Unknown]
  - Menstruation irregular [Unknown]
  - Hot flush [Unknown]
  - Migraine with aura [Unknown]
  - Insomnia [Unknown]
  - Pruritus [Unknown]
  - Musculoskeletal discomfort [Unknown]
  - Back pain [Unknown]
  - Arthralgia [Unknown]
  - Arthralgia [Unknown]
  - Inappropriate schedule of product administration [Unknown]
